FAERS Safety Report 8166876-X (Version None)
Quarter: 2012Q1

REPORT INFORMATION
  Report Type: 
  Country: None (occurrence: None)
  Receive Date: 20120103
  Receipt Date: 20111021
  Transmission Date: 20120608
  Serious: No
  Sender: FDA-Public Use
  Company Number: AE-2011-002553

PATIENT
  Age: 60 Year
  Sex: Female
  Weight: 54.4316 kg

DRUGS (6)
  1. RIBAVIRIN [Concomitant]
  2. MOMETASONE FUROATE CREAM (MOMETASONE FUROATE) [Concomitant]
  3. INCIVEK [Suspect]
     Dosage: 6 DOSAGE FORMS (2 DOSAGE FORMS, 1 IN 8 HR), ORAL
     Route: 048
     Dates: start: 20110801
  4. RECTAL CREAM [Concomitant]
  5. PEGINTERFERON (PEGINTERFERON ALFA-2A) [Concomitant]
  6. ACETAMINOPHEN [Concomitant]

REACTIONS (10)
  - SWOLLEN TONGUE [None]
  - DIARRHOEA [None]
  - EYELID PTOSIS [None]
  - PYREXIA [None]
  - NAUSEA [None]
  - DISTURBANCE IN ATTENTION [None]
  - FATIGUE [None]
  - VOMITING [None]
  - RASH [None]
  - PRURITUS [None]
